FAERS Safety Report 5831833-2 (Version None)
Quarter: 2008Q3

REPORT INFORMATION
  Report Type: 
  Country: None (occurrence: None)
  Receive Date: 20080804
  Receipt Date: 20080725
  Transmission Date: 20090109
  Serious: Yes (Hospitalization)
  Sender: FDA-Public Use
  Company Number: HU-JNJFOC-20080604356

PATIENT
  Age: 23 Year
  Sex: Male

DRUGS (3)
  1. RISPERDAL [Suspect]
     Indication: SCHIZOAFFECTIVE DISORDER
     Route: 048
  2. CONVULEX [Interacting]
     Indication: MANIA
     Route: 048
  3. RIVOTRIL [Concomitant]
     Indication: MANIA
     Route: 048

REACTIONS (4)
  - DRUG INTERACTION [None]
  - EYE PAIN [None]
  - PHOTOPHOBIA [None]
  - VISION BLURRED [None]
